FAERS Safety Report 7028281-9 (Version None)
Quarter: 2010Q4

REPORT INFORMATION
  Report Type: 
  Country: None (occurrence: None)
  Receive Date: 20101005
  Receipt Date: 20100924
  Transmission Date: 20110411
  Serious: Yes (Other)
  Sender: FDA-Public Use
  Company Number: BR-PFIZER INC-2010101066

PATIENT
  Age: 35 Year
  Sex: Female
  Weight: 80 kg

DRUGS (2)
  1. GEODON [Suspect]
     Indication: SCHIZOPHRENIA
     Dosage: 80 MG, 1X/DAY, 2 (40 MG) CAPSULES AT NIGHT
     Route: 048
     Dates: start: 20100501, end: 20100806
  2. ALPRAZOLAM [Suspect]
     Dosage: 1 MG, UNK
     Route: 048
     Dates: start: 20100501, end: 20100806

REACTIONS (7)
  - ANXIETY [None]
  - CONFUSIONAL STATE [None]
  - CRYING [None]
  - DIZZINESS [None]
  - DRUG DOSE OMISSION [None]
  - HEAD BANGING [None]
  - POOR QUALITY SLEEP [None]
